FAERS Safety Report 19489799 (Version 1)
Quarter: 2021Q3

REPORT INFORMATION
  Report Type: Spontaneous
  Country: DE (occurrence: DE)
  Receive Date: 20210704
  Receipt Date: 20210704
  Transmission Date: 20211014
  Serious: Yes (Hospitalization)
  Sender: FDA-Public Use
  Company Number: DE-ORGANON-O2107DEU000115

PATIENT
  Age: 35 Year
  Sex: Female
  Weight: 75 kg

DRUGS (1)
  1. MAXALT [Suspect]
     Active Substance: RIZATRIPTAN BENZOATE
     Indication: MIGRAINE
     Dosage: MORE THAN 10 TABLETS PER MONTH
     Route: 048
     Dates: start: 2001

REACTIONS (4)
  - Arthralgia [Unknown]
  - Gastrointestinal pain [Unknown]
  - Gastrointestinal disorder [Unknown]
  - Migraine [Unknown]
